FAERS Safety Report 4873279-X (Version None)
Quarter: 2006Q1

REPORT INFORMATION
  Report Type: 
  Country: None (occurrence: None)
  Receive Date: 20060103
  Receipt Date: 20051221
  Transmission Date: 20060701
  Serious: Yes (Other)
  Sender: FDA-Public Use
  Company Number: 2005172311

PATIENT
  Age: 38 Year
  Sex: Female
  Weight: 65.7716 kg

DRUGS (4)
  1. SUDAFED PE SINUS HEADACHE CAPLET (ACETAMINOPHEN, PHENYLEPHRINE HYDROCH [Suspect]
     Indication: HEADACHE
     Dosage: 1 CAPLET EVERY 6 HRS FOR THE PAST 3 DAYS, ORAL
     Route: 048
     Dates: start: 20051218, end: 20051221
  2. SUDAFED PE SINUS HEADACHE CAPLET (ACETAMINOPHEN, PHENYLEPHRINE HYDROCH [Suspect]
  3. BENADRYL ALLERGY/SINUS (DIPHENHYDRAMINE, PSEUDOEPHEDRINE) [Suspect]
     Indication: HEADACHE
     Dosage: 2 EVERY 6 HOURS FOR PAST 3 DAYS, ORAL
     Route: 048
     Dates: start: 20051218, end: 20051221
  4. EXCEDRIN (MIGRAINE) [Suspect]
     Indication: HEADACHE
     Dosage: 1 EXCEDRIN, ORAL
     Route: 048
     Dates: start: 20051201

REACTIONS (2)
  - DRUG EXPOSURE DURING PREGNANCY [None]
  - ECTOPIC PREGNANCY [None]
